FAERS Safety Report 8175799-1 (Version None)
Quarter: 2012Q1

REPORT INFORMATION
  Report Type: 
  Country: None (occurrence: None)
  Receive Date: 20120228
  Receipt Date: 20120228
  Transmission Date: 20120608
  Serious: Yes (Death)
  Sender: FDA-Public Use
  Company Number: None

PATIENT
  Age: 78 Year
  Sex: Female

DRUGS (6)
  1. METOPROLOL SUCCINATE [Concomitant]
  2. BUMETANIDE [Concomitant]
  3. ALBUTEROL INHALER [Concomitant]
  4. DOCUSATE [Concomitant]
  5. REVLIMID [Suspect]
     Indication: MULTIPLE MYELOMA
     Dosage: 5MG EVERY OTHER DAY ORALLY
     Route: 048
     Dates: start: 20100501, end: 20110601
  6. OMEPRAZOLE [Concomitant]

REACTIONS (1)
  - HOSPICE CARE [None]
